FAERS Safety Report 23585419 (Version 1)
Quarter: 2024Q1

REPORT INFORMATION
  Report Type: Spontaneous
  Country: FR (occurrence: FR)
  Receive Date: 20240301
  Receipt Date: 20240301
  Transmission Date: 20240410
  Serious: Yes (Other)
  Sender: FDA-Public Use
  Company Number: None

PATIENT
  Age: 71 Year
  Sex: Male
  Weight: 62 kg

DRUGS (5)
  1. ATROPINE [Suspect]
     Active Substance: ATROPINE\ATROPINE SULFATE
     Indication: Chemotherapy side effect prophylaxis
     Dosage: 0.25 MILLIGRAM, SINGLE
     Route: 058
     Dates: start: 20231210, end: 20231210
  2. IRINOTECAN [Suspect]
     Active Substance: IRINOTECAN
     Indication: Oesophageal carcinoma
     Dosage: 77.5 MILLIGRAM, SINGLE
     Route: 042
     Dates: start: 20231210, end: 20231210
  3. LEVOLEUCOVORIN CALCIUM [Suspect]
     Active Substance: LEVOLEUCOVORIN CALCIUM
     Indication: Chemotherapy side effect prophylaxis
     Dosage: 85 MILLIGRAM, SINGLE
     Route: 042
     Dates: start: 20231210, end: 20231210
  4. METHYLPREDNISOLONE [Suspect]
     Active Substance: METHYLPREDNISOLONE
     Indication: Chemotherapy side effect prophylaxis
     Dosage: 60 MILLIGRAM, SINGLE
     Route: 042
     Dates: start: 20231210, end: 20231210
  5. ONDANSETRON [Suspect]
     Active Substance: ONDANSETRON
     Indication: Chemotherapy side effect prophylaxis
     Dosage: 8 MILLIGRAM, SINGLE
     Route: 042
     Dates: start: 20231210, end: 20231210

REACTIONS (1)
  - Pyrexia [Recovered/Resolved]

NARRATIVE: CASE EVENT DATE: 20231210
